FAERS Safety Report 18056151 (Version 1)
Quarter: 2020Q3

REPORT INFORMATION
  Report Type: Report from Study
  Country: CA (occurrence: CA)
  Receive Date: 20200722
  Receipt Date: 20200722
  Transmission Date: 20201103
  Serious: Yes (Other)
  Sender: FDA-Public Use
  Company Number: CA-JNJFOC-20200419880

PATIENT
  Age: 52 Year
  Sex: Female
  Weight: 48.6 kg

DRUGS (3)
  1. SIMPONI [Suspect]
     Active Substance: GOLIMUMAB
     Route: 058
  2. SIMPONI [Suspect]
     Active Substance: GOLIMUMAB
     Indication: COLITIS ULCERATIVE
     Route: 058
     Dates: start: 20160513
  3. SIMPONI [Suspect]
     Active Substance: GOLIMUMAB
     Route: 058
     Dates: start: 20160513

REACTIONS (7)
  - Hordeolum [Recovered/Resolved]
  - Rectal haemorrhage [Unknown]
  - Hot flush [Recovering/Resolving]
  - Plastic surgery [Unknown]
  - Eczema [Recovering/Resolving]
  - Constipation [Unknown]
  - Psoriasis [Recovering/Resolving]

NARRATIVE: CASE EVENT DATE: 20200414
